FAERS Safety Report 7283814-2 (Version None)
Quarter: 2011Q1

REPORT INFORMATION
  Report Type: 
  Country: None (occurrence: None)
  Receive Date: 20110209
  Receipt Date: 20110204
  Transmission Date: 20110831
  Serious: Yes (Other)
  Sender: FDA-Public Use
  Company Number: FR-B.I. PHARMACEUTICALS,INC./RIDGEFIELD-2011-FF-00114FF

PATIENT
  Sex: Female

DRUGS (5)
  1. FENOFIBRATE [Concomitant]
  2. ACTOPLUS MET [Concomitant]
  3. LEVOTHYROX [Concomitant]
  4. AROMASIN [Concomitant]
  5. PRADAXA [Suspect]
     Indication: THROMBOSIS PROPHYLAXIS
     Dosage: 220 MG
     Route: 048
     Dates: start: 20110117, end: 20110124

REACTIONS (3)
  - PULMONARY EMBOLISM [None]
  - DRUG INEFFECTIVE [None]
  - DEEP VEIN THROMBOSIS [None]
